FAERS Safety Report 5833246-6 (Version None)
Quarter: 2008Q3

REPORT INFORMATION
  Report Type: 
  Country: None (occurrence: None)
  Receive Date: 20080805
  Receipt Date: 20080728
  Transmission Date: 20090109
  Serious: No
  Sender: FDA-Public Use
  Company Number: CA-ASTRAZENECA-2008UW15013

PATIENT
  Age: 74 Year
  Sex: Male

DRUGS (2)
  1. IMDUR [Suspect]
     Indication: ANGINA PECTORIS
     Dates: start: 20060101
  2. NITROGLYCERIN [Concomitant]
     Indication: AGRANULOCYTOSIS
     Route: 048
     Dates: start: 20050101

REACTIONS (2)
  - CHEST PAIN [None]
  - PAIN [None]
